FAERS Safety Report 16253457 (Version 1)
Quarter: 2019Q2

REPORT INFORMATION
  Report Type: Spontaneous
  Country: FR (occurrence: FR)
  Receive Date: 20190430
  Receipt Date: 20190430
  Transmission Date: 20190711
  Serious: Yes (Death, Other)
  Sender: FDA-Public Use
  Company Number: FR-AUROBINDO-AUR-APL-2019-023144

PATIENT

DRUGS (3)
  1. LANTUS [Suspect]
     Active Substance: INSULIN GLARGINE
     Indication: DIABETES MELLITUS
     Dosage: 6 INTERNATIONAL UNIT, ONCE A DAY
     Route: 058
     Dates: start: 20190225, end: 20190225
  2. METFORMIN [Suspect]
     Active Substance: METFORMIN HYDROCHLORIDE
     Indication: TYPE 2 DIABETES MELLITUS
     Dosage: 1 CP
     Route: 048
     Dates: start: 20190224, end: 20190225
  3. GLIMEPIRIDE. [Suspect]
     Active Substance: GLIMEPIRIDE
     Indication: TYPE 2 DIABETES MELLITUS
     Dosage: 1CP
     Route: 048
     Dates: start: 20190224, end: 20190225

REACTIONS (1)
  - Death [Fatal]

NARRATIVE: CASE EVENT DATE: 20190226
